FAERS Safety Report 9555652 (Version 1)
Quarter: 2013Q3

REPORT INFORMATION
  Report Type: Spontaneous
  Country: US (occurrence: None)
  Receive Date: 20130925
  Receipt Date: 20130925
  Transmission Date: 20140515
  Serious: Yes (Other)
  Sender: FDA-Public Use
  Company Number: None

PATIENT
  Age: 32 Year
  Sex: Female
  Weight: 63.5 kg

DRUGS (1)
  1. TOPAMAX [Suspect]
     Indication: MIGRAINE
     Dosage: 2 PILLS
     Route: 048
     Dates: start: 20130604, end: 20130914

REACTIONS (4)
  - Asthenia [None]
  - Disturbance in attention [None]
  - Anger [None]
  - Suicidal ideation [None]
